FAERS Safety Report 8976965 (Version 1)
Quarter: 2012Q4

REPORT INFORMATION
  Report Type: 
  Country: US (occurrence: US)
  Receive Date: 20121220
  Receipt Date: 20121220
  Transmission Date: 20130627
  Serious: Yes (Hospitalization)
  Sender: FDA-Public Use
  Company Number: US-BAYER-2012-131396

PATIENT
  Age: 38 Year
  Sex: Female
  Weight: 63.13 kg

DRUGS (16)
  1. YASMIN [Suspect]
     Indication: CONTRACEPTION
  2. YASMIN [Suspect]
     Indication: ACNE
  3. YAZ [Suspect]
  4. ACCUTANE [Concomitant]
     Indication: CYSTIC ACNE
     Dosage: 40 mg, QD
     Dates: start: 20111215, end: 20120328
  5. TYLENOL [Concomitant]
  6. ASPIRIN [Concomitant]
     Dosage: UNK
     Dates: end: 20120417
  7. PROZAC [Concomitant]
     Indication: ANXIETY
     Dosage: 10 mg, QD
  8. PROZAC [Concomitant]
     Indication: DIFFICULTY SLEEPING
  9. NITROFURANTOIN [Concomitant]
     Indication: URINARY TRACT INFECTION
  10. SUMATRIPTAN [Concomitant]
     Indication: MIGRAINE
  11. HYDROCODONE [Concomitant]
     Indication: MIGRAINE
  12. RIZATRIPTAN [Concomitant]
     Indication: MIGRAINE
  13. ONDANSETRON [Concomitant]
     Indication: MIGRAINE
  14. LEVAQUIN [Concomitant]
  15. TOPAMAX [Concomitant]
  16. LASIX [Concomitant]

REACTIONS (1)
  - Transverse sinus thrombosis [None]
